FAERS Safety Report 21897381 (Version 1)
Quarter: 2023Q1

REPORT INFORMATION
  Report Type: Spontaneous
  Country: US (occurrence: None)
  Receive Date: 20230120
  Receipt Date: 20230120
  Transmission Date: 20230418
  Serious: No
  Sender: FDA-Public Use
  Company Number: None

PATIENT
  Sex: Male

DRUGS (1)
  1. CAPECITABINE [Suspect]
     Active Substance: CAPECITABINE
     Dosage: OTHER QUANTITY : 1800;?FREQUENCY : TWICE A DAY;?
     Route: 048

REACTIONS (7)
  - Pulmonary embolism [None]
  - Constipation [None]
  - Nausea [None]
  - Neuropathy peripheral [None]
  - Neuropathy peripheral [None]
  - Product dose omission issue [None]
  - Oral disorder [None]
